FAERS Safety Report 13183482 (Version 1)
Quarter: 2017Q1

REPORT INFORMATION
  Report Type: Spontaneous
  Country: JP (occurrence: JP)
  Receive Date: 20170203
  Receipt Date: 20170203
  Transmission Date: 20170428
  Serious: Yes (Hospitalization)
  Sender: FDA-Public Use
  Company Number: JP-PFIZER INC-2016362972

PATIENT
  Age: 80 Year
  Sex: Male

DRUGS (2)
  1. ELIQUIS [Interacting]
     Active Substance: APIXABAN
     Dosage: 5 MG, 2X/DAY
     Route: 065
  2. FLUCONAZOLE. [Suspect]
     Active Substance: FLUCONAZOLE
     Dosage: 100 MG, DAILY
     Route: 048
     Dates: start: 20160716

REACTIONS (2)
  - Purpura [Recovering/Resolving]
  - Drug interaction [Recovering/Resolving]

NARRATIVE: CASE EVENT DATE: 20160716
